FAERS Safety Report 5889722-3 (Version None)
Quarter: 2008Q3

REPORT INFORMATION
  Report Type: 
  Country: None (occurrence: None)
  Receive Date: 20080919
  Receipt Date: 20080916
  Transmission Date: 20090109
  Serious: Yes (Hospitalization)
  Sender: FDA-Public Use
  Company Number: US-ASTRAZENECA-2008UW19209

PATIENT
  Age: 48 Year
  Sex: Male

DRUGS (5)
  1. ATACAND [Suspect]
     Route: 048
  2. LASIX [Suspect]
  3. OMEPRAZOLE [Concomitant]
     Route: 048
  4. POTASSIUM CHLORIDE [Concomitant]
  5. CLONIDINE [Concomitant]

REACTIONS (2)
  - DEHYDRATION [None]
  - MYOCLONUS [None]
